FAERS Safety Report 8148639-4 (Version None)
Quarter: 2012Q1

REPORT INFORMATION
  Report Type: 
  Country: None (occurrence: None)
  Receive Date: 20120218
  Receipt Date: 20110623
  Transmission Date: 20120608
  Serious: No
  Sender: FDA-Public Use
  Company Number: US-ALLERGAN-1108538US

PATIENT
  Age: 54 Year
  Sex: Female

DRUGS (2)
  1. DIAZEPAM [Concomitant]
  2. BOTOX COSMETIC [Suspect]
     Indication: SKIN WRINKLING
     Dosage: 50 UNITS, SINGLE
     Route: 030
     Dates: start: 20110602, end: 20110602

REACTIONS (4)
  - DRY EYE [None]
  - EYELID PTOSIS [None]
  - EYE PRURITUS [None]
  - EYELID OEDEMA [None]
